FAERS Safety Report 5690143-7 (Version None)
Quarter: 2008Q2

REPORT INFORMATION
  Report Type: 
  Country: None (occurrence: None)
  Receive Date: 20080401
  Receipt Date: 20080326
  Transmission Date: 20081010
  Serious: Yes (Hospitalization, Other)
  Sender: FDA-Public Use
  Company Number: PHHY2008BR03870

PATIENT
  Age: 18 Year
  Sex: Female
  Weight: 95 kg

DRUGS (4)
  1. TRILEPTAL [Suspect]
     Indication: EPILEPSY
     Dosage: 6-8 TABLETS OF DIFFERENT DOSES
     Dates: start: 20080101
  2. TEGRETOL [Suspect]
     Indication: EPILEPSY
     Dosage: 600 MG, UNK
     Dates: end: 20080201
  3. CLOBAZAM [Concomitant]
     Dosage: 10 MG, HALF TABLET AT NIGHT
     Route: 048
  4. METFORMIN HCL [Concomitant]
     Indication: BLOOD GLUCOSE ABNORMAL
     Dosage: 1 TABLET, ONCE/SINGLE
     Route: 048

REACTIONS (5)
  - ELECTROENCEPHALOGRAM [None]
  - EPILEPSY [None]
  - HYPERSOMNIA [None]
  - SOMNOLENCE [None]
  - WEIGHT INCREASED [None]
